FAERS Safety Report 9526569 (Version 1)
Quarter: 2013Q3

REPORT INFORMATION
  Report Type: Spontaneous
  Country: US (occurrence: US)
  Receive Date: 20130916
  Receipt Date: 20130916
  Transmission Date: 20140515
  Serious: No
  Sender: FDA-Public Use
  Company Number: US-PFIZER INC-2013261835

PATIENT
  Sex: Female

DRUGS (6)
  1. GLIPIZIDE [Suspect]
     Indication: DIABETES MELLITUS
     Dosage: UNK
  2. METFORMIN HCL [Interacting]
     Indication: DIABETES MELLITUS
     Dosage: UNK
  3. CENTRUM SILVER WOMEN^S 50+ [Interacting]
     Dosage: UNK (HALF A TABLET), EVERY 12 HOURS
     Route: 048
     Dates: end: 201308
  4. CENTRUM SILVER WOMEN^S 50+ [Interacting]
     Dosage: UNK (HALF A TABLET), EVERY 12 HOURS
     Route: 048
     Dates: start: 20130908
  5. LOVASTATIN [Interacting]
     Dosage: UNK
  6. CALGEST [Interacting]
     Indication: ANTACID THERAPY
     Dosage: 500 MG, UNK

REACTIONS (4)
  - Tooth fracture [Unknown]
  - Tooth loss [Unknown]
  - Blood glucose abnormal [Unknown]
  - Drug interaction [Unknown]
